FAERS Safety Report 9672237 (Version 2)
Quarter: 2013Q4

REPORT INFORMATION
  Report Type: Spontaneous
  Country: US (occurrence: US)
  Receive Date: 20131106
  Receipt Date: 20131106
  Transmission Date: 20140711
  Serious: Yes (Hospitalization)
  Sender: FDA-Public Use
  Company Number: US-BAXTER-2013BAX042274

PATIENT
  Sex: Male

DRUGS (6)
  1. DIANEAL PD2 [Suspect]
     Indication: RENAL FAILURE CHRONIC
     Route: 033
     Dates: start: 201211
  2. DIANEAL PD2 [Suspect]
     Route: 033
     Dates: start: 201211
  3. DIANEAL PD2 [Suspect]
     Route: 033
     Dates: start: 201211
  4. DIANEAL PD2 [Suspect]
     Indication: RENAL FAILURE CHRONIC
     Route: 033
     Dates: start: 201211
  5. DIANEAL PD2 [Suspect]
     Route: 033
     Dates: start: 201211
  6. DIANEAL PD2 [Suspect]
     Route: 033
     Dates: start: 201211

REACTIONS (1)
  - Localised infection [Recovering/Resolving]
